FAERS Safety Report 24182745 (Version 3)
Quarter: 2024Q3

REPORT INFORMATION
  Report Type: Report from Study
  Country: GB (occurrence: GB)
  Receive Date: 20240807
  Receipt Date: 20240809
  Transmission Date: 20241017
  Serious: Yes (Other)
  Sender: SANDOZ
  Company Number: GB-SANDOZ-SDZ2024GB070276

PATIENT
  Sex: Female

DRUGS (1)
  1. HYRIMOZ [Suspect]
     Active Substance: ADALIMUMAB-ADAZ
     Indication: Psoriatic arthropathy
     Dosage: 40 MG, Q2W, 40MG/0.4ML SOLUTION FOR INJECTION PRE-FILLED PENS (SANDOZ LTD) 2 PRE-FILLED DISPOSABLE I
     Route: 058
     Dates: start: 20230818

REACTIONS (10)
  - Swelling face [Recovering/Resolving]
  - Loss of personal independence in daily activities [Recovering/Resolving]
  - Haemorrhage [Recovering/Resolving]
  - Peripheral swelling [Recovering/Resolving]
  - Illness [Recovering/Resolving]
  - Weight decreased [Recovering/Resolving]
  - Skin exfoliation [Recovering/Resolving]
  - Dermatitis [Recovering/Resolving]
  - Rash [Recovering/Resolving]
  - Headache [Recovering/Resolving]
